FAERS Safety Report 7329051-4 (Version None)
Quarter: 2011Q1

REPORT INFORMATION
  Report Type: 
  Country: None (occurrence: None)
  Receive Date: 20110303
  Receipt Date: 20110228
  Transmission Date: 20110831
  Serious: Yes (Hospitalization)
  Sender: FDA-Public Use
  Company Number: ES-PFIZER INC-2011044264

PATIENT
  Age: 80 Year
  Sex: Female

DRUGS (6)
  1. ENALAPRIL [Suspect]
     Indication: HYPERTENSION
     Dosage: 5 MG, 1X/DAY
     Route: 065
     Dates: start: 20100101, end: 20100910
  2. DIGOXIN [Concomitant]
     Route: 065
  3. AREMIS [Concomitant]
     Route: 065
  4. ALDACTONE [Suspect]
     Indication: HYPERTENSION
     Dosage: 1 DF, 1X/DAY
     Route: 065
     Dates: start: 20100101, end: 20100910
  5. SEGURIL [Concomitant]
     Indication: HYPERTENSION
     Dosage: 1 DF, 2X/DAY
     Route: 065
  6. SINTROM [Concomitant]
     Route: 065

REACTIONS (3)
  - ATRIAL FIBRILLATION [None]
  - RENAL FAILURE [None]
  - HYPERKALAEMIA [None]
